FAERS Safety Report 16962598 (Version 1)
Quarter: 2019Q4

REPORT INFORMATION
  Report Type: Spontaneous
  Country: US (occurrence: US)
  Receive Date: 20190908
  Receipt Date: 20190908
  Transmission Date: 20200122
  Serious: No
  Sender: FDA-Public Use
  Company Number: None

PATIENT
  Age: 33 Year
  Sex: Female

DRUGS (1)
  1. ADCIRCA [Suspect]
     Active Substance: TADALAFIL
     Route: 048
     Dates: start: 20190908

REACTIONS (6)
  - Peripheral swelling [None]
  - Swelling face [None]
  - Pulmonary congestion [None]
  - Chest discomfort [None]
  - Headache [None]
  - Cough [None]

NARRATIVE: CASE EVENT DATE: 20190908
